FAERS Safety Report 4461991-6 (Version None)
Quarter: 2004Q3

REPORT INFORMATION
  Report Type: 
  Country: None (occurrence: None)
  Receive Date: 20040923
  Receipt Date: 20040914
  Transmission Date: 20050211
  Serious: Yes (Other)
  Sender: FDA-Public Use
  Company Number: PHBS2004PE11845

PATIENT
  Age: 86 Year
  Sex: Male

DRUGS (8)
  1. VISUDYNE [Suspect]
     Indication: MACULAR DEGENERATION
     Dates: start: 20040801, end: 20040801
  2. CELEBREX [Concomitant]
  3. ANDROCUR [Concomitant]
  4. DIETHYSTILBESTROL [Concomitant]
  5. ZOMETA [Concomitant]
  6. ECOTRIN [Concomitant]
  7. DAFLON [Concomitant]
  8. VASOTEC [Concomitant]

REACTIONS (2)
  - ANGIONEUROTIC OEDEMA [None]
  - IRIDOCYCLITIS [None]
